FAERS Safety Report 21333900 (Version 1)
Quarter: 2022Q3

REPORT INFORMATION
  Report Type: Spontaneous
  Country: US (occurrence: None)
  Receive Date: 20220914
  Receipt Date: 20220914
  Transmission Date: 20221027
  Serious: Yes (Hospitalization, Other)
  Sender: FDA-Public Use
  Company Number: US-FARMAPROD-202209-1709

PATIENT
  Age: 24 Year
  Sex: Male

DRUGS (6)
  1. OXERVATE [Suspect]
     Active Substance: CENEGERMIN-BKBJ
     Indication: Neurotrophic keratopathy
     Route: 047
     Dates: start: 20220609, end: 20220803
  2. FAMCICLOVIR [Concomitant]
     Active Substance: FAMCICLOVIR
  3. ERYTHROMYCIN [Concomitant]
     Active Substance: ERYTHROMYCIN
  4. LOTEMAX [Concomitant]
     Active Substance: LOTEPREDNOL ETABONATE
  5. ACTHAR [Concomitant]
     Active Substance: CORTICOTROPIN
     Dosage: VIAL
  6. VYZULTA [Concomitant]
     Active Substance: LATANOPROSTENE BUNOD

REACTIONS (2)
  - Eye operation [Recovered/Resolved]
  - Disease recurrence [Recovered/Resolved]

NARRATIVE: CASE EVENT DATE: 20220829
